FAERS Safety Report 8036685-0 (Version None)
Quarter: 2012Q1

REPORT INFORMATION
  Report Type: 
  Country: None (occurrence: None)
  Receive Date: 20120111
  Receipt Date: 20120109
  Transmission Date: 20120608
  Serious: Yes (Hospitalization, Disabling)
  Sender: FDA-Public Use
  Company Number: US-JNJFOC-20110705396

PATIENT
  Sex: Male
  Weight: 77.11 kg

DRUGS (12)
  1. ASPIRIN [Concomitant]
     Route: 065
  2. PRILOSEC [Concomitant]
     Route: 065
  3. PRAVASTATIN [Concomitant]
     Route: 065
  4. ACTOS [Concomitant]
     Indication: DIABETES MELLITUS
     Route: 048
     Dates: end: 20100101
  5. EFFEXOR [Concomitant]
     Route: 065
  6. POTASSIUM CHLORIDE [Concomitant]
     Route: 065
  7. METOLAZONE [Concomitant]
     Dosage: MONDAY, WEDNESDAY AND FRIDAY
     Route: 065
  8. SPORANOX [Suspect]
     Indication: HISTOPLASMOSIS DISSEMINATED
     Route: 065
     Dates: start: 20100601, end: 20101101
  9. SPORANOX [Suspect]
     Route: 065
     Dates: end: 20110101
  10. LANTUS [Concomitant]
     Indication: DIABETES MELLITUS
     Dosage: 4-5 U UNITS
     Route: 058
     Dates: start: 20100101
  11. DIOVAN [Concomitant]
     Indication: HYPERTENSION
     Route: 048
  12. LASIX [Concomitant]
     Route: 065

REACTIONS (3)
  - PLEURAL EFFUSION [None]
  - DIABETES MELLITUS [None]
  - CARDIAC FAILURE CONGESTIVE [None]
